FAERS Safety Report 13013695 (Version 1)
Quarter: 2016Q4

REPORT INFORMATION
  Report Type: Spontaneous
  Country: GR (occurrence: GR)
  Receive Date: 20161209
  Receipt Date: 20161209
  Transmission Date: 20170207
  Serious: Yes (Death, Other)
  Sender: FDA-Public Use
  Company Number: GR-ACORDA-ACO_131012_2016

PATIENT
  Sex: Female

DRUGS (2)
  1. QUTENZA [Suspect]
     Active Substance: CAPSAICIN
     Indication: NEURALGIA
     Dosage: 2 DF (2 PATCHES), UNKNOWN FREQ.
     Route: 003
     Dates: start: 20151217, end: 20151217
  2. QUTENZA [Suspect]
     Active Substance: CAPSAICIN
     Dosage: 1 DF (1 PATCH), UNKNOWN FREQ.
     Route: 003
     Dates: start: 20151218, end: 20151218

REACTIONS (1)
  - Neoplasm malignant [Fatal]
